FAERS Safety Report 7585346-0 (Version None)
Quarter: 2011Q3

REPORT INFORMATION
  Report Type: 
  Country: None (occurrence: None)
  Receive Date: 20110701
  Receipt Date: 20090416
  Transmission Date: 20111222
  Serious: Yes (Hospitalization, Other)
  Sender: FDA-Public Use
  Company Number: US-BAYER-200918292NA

PATIENT
  Age: 60 Year
  Sex: Male
  Weight: 107.94 kg

DRUGS (15)
  1. METFORMIN HCL [Concomitant]
     Dosage: 500 MG, BID, LONG TERM USE
     Route: 048
  2. TOPROL-XL [Concomitant]
     Dosage: 50 MG, BID, LONG TERM USE
     Route: 048
  3. ACETYLSALICYLIC ACID SRT [Concomitant]
     Dosage: 325 MG, DAILY, LONG TERM USE
     Route: 048
  4. PLAVIX [Concomitant]
     Dosage: 75 MG, DAILY, LONG TERM USE
     Route: 048
  5. IMDUR [Concomitant]
     Dosage: 60 MG, DAILY, LONG TERM USE
     Route: 048
  6. INSULIN [Concomitant]
     Dosage: 57 U, UNK
     Route: 042
     Dates: start: 20040412, end: 20040412
  7. TRASYLOL [Suspect]
     Indication: PRODUCT USED FOR UNKNOWN INDICATION
     Dosage: 1 ML TEST DOSE AND 25CC/HR INFUSION.
     Route: 042
     Dates: start: 20040412, end: 20040412
  8. GLUCOPHAGE [Concomitant]
     Dosage: 500 MG, BID, LONG TERM USE
     Route: 048
  9. LISINOPRIL [Concomitant]
     Dosage: 30 MG, DAILY, LONG TERM USE
     Route: 048
  10. KEFZOL [Concomitant]
     Dosage: 2 G, UNK
     Route: 042
     Dates: start: 20040412, end: 20040412
  11. LASIX [Concomitant]
     Dosage: 40 MG, BID, LONG TERM USE
     Route: 048
  12. CONTRAST MEDIA [Concomitant]
     Indication: CATHETERISATION CARDIAC
     Dosage: UNK
     Route: 042
     Dates: start: 20040405
  13. NORVASC [Concomitant]
     Dosage: 5 MG, DAILY, LONG TERM USE
     Route: 048
  14. PACKED RED BLOOD CELLS [Concomitant]
     Dosage: 2 U, UNK
     Route: 042
     Dates: start: 20040412
  15. HEPARIN [Concomitant]
     Dosage: 38000 U, UNK
     Route: 042
     Dates: start: 20040412, end: 20040412

REACTIONS (13)
  - RENAL FAILURE [None]
  - CARDIAC ARREST [None]
  - STRESS [None]
  - ANHEDONIA [None]
  - INJURY [None]
  - MULTI-ORGAN FAILURE [None]
  - RENAL INJURY [None]
  - EMOTIONAL DISTRESS [None]
  - FEAR [None]
  - PAIN [None]
  - RENAL IMPAIRMENT [None]
  - ANXIETY [None]
  - UNEVALUABLE EVENT [None]
